FAERS Safety Report 4979831-5 (Version None)
Quarter: 2006Q2

REPORT INFORMATION
  Report Type: 
  Country: None (occurrence: None)
  Receive Date: 20060421
  Receipt Date: 20051111
  Transmission Date: 20061013
  Serious: Yes (Hospitalization)
  Sender: FDA-Public Use
  Company Number: US-MERCK-0511USA02252

PATIENT
  Age: 79 Year
  Sex: Female
  Weight: 80 kg

DRUGS (14)
  1. VIOXX [Suspect]
     Indication: OSTEOARTHRITIS
     Route: 048
     Dates: start: 20000101, end: 20040101
  2. ACETAMINOPHEN [Concomitant]
     Indication: PAIN
     Route: 065
  3. AMBIEN [Concomitant]
     Indication: INSOMNIA
     Route: 065
  4. BUSPAR [Concomitant]
     Indication: ANXIETY
     Route: 065
  5. DITROPAN XL [Concomitant]
     Indication: HYPERTONIC BLADDER
     Route: 065
  6. DURAGESIC-100 [Concomitant]
     Indication: PAIN
     Route: 065
  7. LACTULOSE [Concomitant]
     Indication: CONSTIPATION
     Route: 065
  8. MECLIZINE [Concomitant]
     Indication: DIZZINESS
     Route: 065
  9. MIRALAX [Concomitant]
     Indication: CONSTIPATION
     Route: 065
  10. NORVASC [Concomitant]
     Indication: HYPERTENSION
     Route: 065
  11. OXYCONTIN [Concomitant]
     Indication: PAIN
     Route: 065
  12. PLAVIX [Concomitant]
     Route: 065
  13. PREDNISONE [Concomitant]
     Route: 065
  14. ULTRACET [Concomitant]
     Indication: PAIN
     Route: 065

REACTIONS (17)
  - ANAEMIA [None]
  - ANXIETY [None]
  - ATRIAL FIBRILLATION [None]
  - BLOOD CHOLESTEROL INCREASED [None]
  - CARDIAC FAILURE CONGESTIVE [None]
  - CAROTID ARTERY STENOSIS [None]
  - CEREBRAL INFARCTION [None]
  - CHEST PAIN [None]
  - CHOLECYSTECTOMY [None]
  - DIZZINESS [None]
  - FATIGUE [None]
  - GASTRIC ULCER HAEMORRHAGE [None]
  - HYPERTENSION [None]
  - INSOMNIA [None]
  - MITRAL VALVE INCOMPETENCE [None]
  - MYOCARDIAL INFARCTION [None]
  - OEDEMA PERIPHERAL [None]
